FAERS Safety Report 5851545-9 (Version None)
Quarter: 2008Q3

REPORT INFORMATION
  Report Type: 
  Country: None (occurrence: None)
  Receive Date: 20080820
  Receipt Date: 20080721
  Transmission Date: 20090109
  Serious: Yes (Death, Hospitalization)
  Sender: FDA-Public Use
  Company Number: BR-BAXTER-2008BH007204

PATIENT
  Age: 63 Year
  Sex: Female
  Weight: 55 kg

DRUGS (6)
  1. DIANEAL [Suspect]
     Indication: PERITONEAL DIALYSIS
     Dosage: DOSE UNIT:UNKNOWN
     Route: 033
     Dates: end: 20080501
  2. COMPLEX B [Concomitant]
  3. FOLIC ACID [Concomitant]
  4. ATORVASTATIN [Concomitant]
  5. RENAGEL [Concomitant]
  6. SLOW-K [Concomitant]

REACTIONS (4)
  - GENERAL PHYSICAL HEALTH DETERIORATION [None]
  - HYPOTENSION [None]
  - PERITONITIS BACTERIAL [None]
  - SEPSIS [None]
